FAERS Safety Report 10698118 (Version 7)
Quarter: 2019Q4

REPORT INFORMATION
  Report Type: Report from Study
  Country: US (occurrence: US)
  Receive Date: 20150108
  Receipt Date: 20191223
  Transmission Date: 20200122
  Serious: Yes (Hospitalization, Other)
  Sender: FDA-Public Use
  Company Number: US-SANOFI-AVENTIS-2013SA069686

PATIENT
  Age: 44 Year
  Sex: Female

DRUGS (11)
  1. TERIFLUNOMIDE. [Suspect]
     Active Substance: TERIFLUNOMIDE
     Indication: MULTIPLE SCLEROSIS
     Dosage: 14 MG,QD
     Route: 048
     Dates: start: 20130626, end: 20160123
  2. TERIFLUNOMIDE. [Suspect]
     Active Substance: TERIFLUNOMIDE
     Dosage: 14 MG,QD
     Route: 048
  3. URIBEL [Concomitant]
     Active Substance: HYOSCYAMINE SULFATE\METHENAMINE\METHYLENE BLUE\PHENYL SALICYLATE\SODIUM PHOSPHATE, MONOBASIC, MONOHYDRATE
     Indication: PROPHYLAXIS
     Dosage: UNK
  4. LYRICA [Concomitant]
     Active Substance: PREGABALIN
     Dosage: 50 MG,TID
     Dates: start: 201512
  5. GABAPENTIN. [Concomitant]
     Active Substance: GABAPENTIN
     Dosage: UNK
  6. AMPYRA [Concomitant]
     Active Substance: DALFAMPRIDINE
     Indication: GAIT DISTURBANCE
     Dosage: UNK
     Dates: start: 20140101, end: 20160123
  7. AMBIEN [Concomitant]
     Active Substance: ZOLPIDEM TARTRATE
     Dosage: UNK
  8. SEROQUEL [Concomitant]
     Active Substance: QUETIAPINE FUMARATE
     Indication: SLEEP DISORDER
     Dosage: UNK
  9. LUNESTA [Concomitant]
     Active Substance: ESZOPICLONE
     Indication: SLEEP DISORDER
     Dosage: UNK
  10. ZANAFLEX [Concomitant]
     Active Substance: TIZANIDINE HYDROCHLORIDE
     Dosage: UNK
  11. AMPYRA [Concomitant]
     Active Substance: DALFAMPRIDINE
     Indication: BALANCE DISORDER

REACTIONS (32)
  - Back injury [Not Recovered/Not Resolved]
  - Intervertebral disc degeneration [Unknown]
  - Panic attack [Recovering/Resolving]
  - Gait disturbance [Unknown]
  - Blood cholesterol increased [Unknown]
  - Migraine [Unknown]
  - Pain [Unknown]
  - Gastrointestinal pain [Unknown]
  - Weight decreased [Recovered/Resolved]
  - Headache [Not Recovered/Not Resolved]
  - Insomnia [Unknown]
  - Road traffic accident [Unknown]
  - Back disorder [Unknown]
  - Post-traumatic stress disorder [Unknown]
  - Nausea [Recovered/Resolved]
  - Therapeutic response decreased [Unknown]
  - Limb injury [Not Recovered/Not Resolved]
  - Decreased appetite [Recovered/Resolved]
  - Osteoporosis [Unknown]
  - Abdominal pain [Unknown]
  - White blood cell count decreased [Not Recovered/Not Resolved]
  - Neck injury [Recovering/Resolving]
  - Multiple sclerosis relapse [Unknown]
  - Fatigue [Not Recovered/Not Resolved]
  - Product dose omission [Unknown]
  - Hypothyroidism [Unknown]
  - Feeling abnormal [Unknown]
  - Stress [Unknown]
  - Nausea [Not Recovered/Not Resolved]
  - Intervertebral disc protrusion [Not Recovered/Not Resolved]
  - Sinusitis [Not Recovered/Not Resolved]
  - Wrong technique in product usage process [Unknown]

NARRATIVE: CASE EVENT DATE: 20130628
